FAERS Safety Report 10346992 (Version 2)
Quarter: 2014Q3

REPORT INFORMATION
  Report Type: Spontaneous
  Country: FR (occurrence: FR)
  Receive Date: 20140729
  Receipt Date: 20140729
  Transmission Date: 20150326
  Serious: Yes (Hospitalization)
  Sender: FDA-Public Use
  Company Number: FR-ROCHE-1401365

PATIENT
  Sex: Female
  Weight: 63 kg

DRUGS (5)
  1. KARDEGIC [Concomitant]
     Active Substance: ASPIRIN LYSINE
     Indication: ARTERITIS
     Route: 048
     Dates: start: 2009
  2. COVERSYL [Concomitant]
     Active Substance: PERINDOPRIL
     Indication: HYPERTENSION
     Route: 048
     Dates: start: 2009
  3. ROACTEMRA [Suspect]
     Active Substance: TOCILIZUMAB
     Indication: RHEUMATOID ARTHRITIS
     Route: 042
     Dates: start: 20130204, end: 20140416
  4. PLAVIX [Concomitant]
     Active Substance: CLOPIDOGREL BISULFATE
     Route: 048
     Dates: start: 2009
  5. TEMERIT [Concomitant]
     Active Substance: NEBIVOLOL
     Indication: CORONARY ARTERY INSUFFICIENCY
     Route: 048
     Dates: start: 2009

REACTIONS (3)
  - Ulcerative keratitis [Recovered/Resolved with Sequelae]
  - Necrotising scleritis [Recovered/Resolved with Sequelae]
  - Corneal abscess [Recovered/Resolved with Sequelae]

NARRATIVE: CASE EVENT DATE: 201404
